FAERS Safety Report 10061109 (Version 1)
Quarter: 2014Q2

REPORT INFORMATION
  Report Type: Spontaneous
  Country: US (occurrence: US)
  Receive Date: 20140406
  Receipt Date: 20140406
  Transmission Date: 20141212
  Serious: No
  Sender: FDA-Public Use
  Company Number: US-TEVA-472252USA

PATIENT
  Age: 37 Year
  Sex: Female
  Weight: 50.85 kg

DRUGS (2)
  1. PROAIR HFA [Suspect]
     Indication: BRONCHITIS
     Route: 055
     Dates: start: 20140324
  2. MUCINEX [Concomitant]

REACTIONS (3)
  - Nasopharyngitis [Not Recovered/Not Resolved]
  - Parosmia [Not Recovered/Not Resolved]
  - Secretion discharge [Not Recovered/Not Resolved]
